FAERS Safety Report 6274239-7 (Version None)
Quarter: 2009Q3

REPORT INFORMATION
  Report Type: 
  Country: None (occurrence: None)
  Receive Date: 20090720
  Receipt Date: 20090713
  Transmission Date: 20100115
  Serious: No
  Sender: FDA-Public Use
  Company Number: US-JNJFOC-20090704801

PATIENT
  Sex: Female
  Weight: 95.26 kg

DRUGS (4)
  1. DURAGESIC-100 [Suspect]
     Indication: NECK PAIN
     Route: 062
  2. ALPRAZOLAM [Concomitant]
     Indication: SLEEP DISORDER THERAPY
  3. LORATADINE [Concomitant]
     Indication: SEASONAL ALLERGY
  4. SPRINTEC [Concomitant]
     Indication: CONTRACEPTION
     Route: 048

REACTIONS (4)
  - MALAISE [None]
  - NAUSEA [None]
  - VOMITING [None]
  - WRONG TECHNIQUE IN DRUG USAGE PROCESS [None]
